FAERS Safety Report 12380605 (Version 1)
Quarter: 2016Q2

REPORT INFORMATION
  Report Type: Other
  Country: TR (occurrence: TR)
  Receive Date: 20160518
  Receipt Date: 20160518
  Transmission Date: 20160815
  Serious: Yes (Other)
  Sender: FDA-Public Use
  Company Number: TR-LUPIN PHARMACEUTICALS INC.-2016-01975

PATIENT
  Age: 3 Month
  Sex: Female
  Weight: 7 kg

DRUGS (1)
  1. VANCOMYCIN [Suspect]
     Active Substance: VANCOMYCIN
     Indication: STAPHYLOCOCCAL INFECTION
     Dosage: 40 MG/KG
     Route: 065

REACTIONS (2)
  - Haemangioma congenital [Recovered/Resolved]
  - Red man syndrome [Recovered/Resolved]
